FAERS Safety Report 7554742-X (Version None)
Quarter: 2011Q2

REPORT INFORMATION
  Report Type: 
  Country: None (occurrence: None)
  Receive Date: 20110615
  Receipt Date: 20110615
  Transmission Date: 20111010
  Serious: No
  Sender: FDA-Public Use
  Company Number: None

PATIENT
  Age: 46 Year
  Sex: Male

DRUGS (1)
  1. AUGMENTIN '125' [Suspect]
     Dates: start: 20071117, end: 20071127

REACTIONS (11)
  - LIVER DISORDER [None]
  - URINE ODOUR ABNORMAL [None]
  - NAUSEA [None]
  - LETHARGY [None]
  - LIVER INJURY [None]
  - CHILLS [None]
  - VIRAEMIA [None]
  - HEPATOTOXICITY [None]
  - HEPATITIS C [None]
  - URINARY TRACT INFECTION [None]
  - VOMITING [None]
